APPROVED DRUG PRODUCT: ATROVENT HFA
Active Ingredient: IPRATROPIUM BROMIDE
Strength: 0.021MG/INH
Dosage Form/Route: AEROSOL, METERED;INHALATION
Application: N021527 | Product #001
Applicant: BOEHRINGER INGELHEIM PHARMACEUTICALS INC
Approved: Nov 27, 2004 | RLD: Yes | RS: Yes | Type: RX

PATENTS:
Patent 8474447 | Expires: Jan 17, 2030